FAERS Safety Report 9202357 (Version 4)
Quarter: 2013Q2

REPORT INFORMATION
  Report Type: Spontaneous
  Country: GR (occurrence: GR)
  Receive Date: 20130401
  Receipt Date: 20130528
  Transmission Date: 20140414
  Serious: Yes (Hospitalization, Other)
  Sender: FDA-Public Use
  Company Number: GR-BAXTER-2013BAX011179

PATIENT
  Age: 52 Year
  Sex: Female
  Weight: 68 kg

DRUGS (22)
  1. EXTRANEAL SOLUTION FOR PERITONEAL DIALYSIS 7.5% W/V (75 G/L) [Suspect]
     Indication: FLUID OVERLOAD
     Route: 033
     Dates: start: 20130311, end: 20130312
  2. EXTRANEAL SOLUTION FOR PERITONEAL DIALYSIS 7.5% W/V (75 G/L) [Suspect]
     Indication: OFF LABEL USE
     Route: 033
     Dates: start: 20130313, end: 20130313
  3. EXTRANEAL SOLUTION FOR PERITONEAL DIALYSIS 7.5% W/V (75 G/L) [Suspect]
     Indication: PERITONEAL DIALYSIS
     Route: 033
     Dates: start: 20130314, end: 20130316
  4. EXTRANEAL SOLUTION FOR PERITONEAL DIALYSIS 7.5% W/V (75 G/L) [Suspect]
     Route: 033
     Dates: start: 20130317, end: 20130317
  5. EXTRANEAL SOLUTION FOR PERITONEAL DIALYSIS 7.5% W/V (75 G/L) [Suspect]
     Route: 033
     Dates: start: 20130318, end: 20130318
  6. EXTRANEAL SOLUTION FOR PERITONEAL DIALYSIS 7.5% W/V (75 G/L) [Suspect]
     Route: 033
     Dates: start: 20130319, end: 20130319
  7. EXTRANEAL SOLUTION FOR PERITONEAL DIALYSIS 7.5% W/V (75 G/L) [Suspect]
     Route: 033
     Dates: start: 20130320, end: 20130320
  8. EXTRANEAL SOLUTION FOR PERITONEAL DIALYSIS 7.5% W/V (75 G/L) [Suspect]
     Route: 033
     Dates: start: 20130321, end: 20130322
  9. EXTRANEAL SOLUTION FOR PERITONEAL DIALYSIS 7.5% W/V (75 G/L) [Suspect]
     Route: 033
     Dates: start: 20130323, end: 20130323
  10. EXTRANEAL SOLUTION FOR PERITONEAL DIALYSIS 7.5% W/V (75 G/L) [Suspect]
     Route: 033
     Dates: start: 20130312, end: 20130319
  11. EXTRANEAL SOLUTION FOR PERITONEAL DIALYSIS 7.5% W/V (75 G/L) [Suspect]
     Route: 033
     Dates: start: 20130320, end: 20130324
  12. HUMALOG [Concomitant]
     Indication: PRODUCT USED FOR UNKNOWN INDICATION
     Route: 065
  13. FUROSEMIDE [Concomitant]
     Indication: DIURETIC THERAPY
     Route: 048
  14. METOPROLOL [Concomitant]
     Indication: CORONARY ARTERY DISEASE
     Route: 048
  15. ATORVASTATIN [Concomitant]
     Indication: HYPERLIPIDAEMIA
     Route: 048
  16. INSULIN [Concomitant]
     Indication: PRODUCT USED FOR UNKNOWN INDICATION
     Route: 065
  17. HUMULIN [Concomitant]
     Indication: PRODUCT USED FOR UNKNOWN INDICATION
     Route: 065
  18. SEVELAMER [Concomitant]
     Indication: HYPERPHOSPHATAEMIA
     Route: 048
  19. CLOPIDOGREL [Concomitant]
     Indication: CORONARY ARTERY DISEASE
     Route: 048
  20. CLOPIDOGREL [Concomitant]
     Indication: CAROTID ARTERY DISEASE
  21. SALOSPIR [Concomitant]
     Indication: CAROTID ARTERY DISEASE
     Route: 048
  22. LANTUS [Concomitant]
     Indication: PRODUCT USED FOR UNKNOWN INDICATION
     Route: 065

REACTIONS (10)
  - Hypoglycaemia [Recovered/Resolved]
  - Fluid overload [Unknown]
  - Device interaction [Unknown]
  - Incorrect dose administered [Unknown]
  - Dermatitis allergic [Not Recovered/Not Resolved]
  - Dermatitis exfoliative [Not Recovered/Not Resolved]
  - Generalised erythema [Not Recovered/Not Resolved]
  - Renal failure acute [Unknown]
  - Ultrafiltration failure [Unknown]
  - Urine output decreased [Unknown]
